FAERS Safety Report 23487203 (Version 2)
Quarter: 2024Q1

REPORT INFORMATION
  Report Type: Spontaneous
  Country: GB (occurrence: None)
  Receive Date: 20240206
  Receipt Date: 20240220
  Transmission Date: 20240410
  Serious: Yes (Other)
  Sender: FDA-Public Use
  Company Number: GB-ROCHE-3313693

PATIENT
  Age: 47 Year
  Sex: Female

DRUGS (1)
  1. ROZLYTREK [Suspect]
     Active Substance: ENTRECTINIB
     Indication: Lung neoplasm malignant
     Route: 065

REACTIONS (5)
  - Ligament injury [Unknown]
  - Bone swelling [Unknown]
  - Fall [Unknown]
  - Metastases to central nervous system [Unknown]
  - Quality of life decreased [Unknown]
